FAERS Safety Report 18138808 (Version 1)
Quarter: 2020Q3

REPORT INFORMATION
  Report Type: Spontaneous
  Country: US (occurrence: US)
  Receive Date: 20200811
  Receipt Date: 20200811
  Transmission Date: 20201103
  Serious: Yes (Other)
  Sender: FDA-Public Use
  Company Number: None

PATIENT
  Age: 63 Year
  Sex: Male

DRUGS (21)
  1. LOSARTAN POT [Concomitant]
     Active Substance: LOSARTAN POTASSIUM
  2. CLOBETASOL [Concomitant]
     Active Substance: CLOBETASOL
  3. DIOVAN [Concomitant]
     Active Substance: VALSARTAN
  4. FOLIC ACID. [Concomitant]
     Active Substance: FOLIC ACID
  5. MULTL?VITAMIN [Concomitant]
  6. A?HYDROCORT [Concomitant]
     Active Substance: HYDROCORTISONE SODIUM SUCCINATE
  7. HYDROCO/APAP [Concomitant]
     Active Substance: ACETAMINOPHEN\HYDROCODONE
  8. NYSTOP [Concomitant]
     Active Substance: NYSTATIN
  9. ASPIRL Y LOW [Concomitant]
  10. CLARLTIN [Concomitant]
  11. AUG BETAMET [Concomitant]
  12. CYCLOBENZAPR [Concomitant]
     Active Substance: CYCLOBENZAPRINE
  13. LIPITOR [Concomitant]
     Active Substance: ATORVASTATIN CALCIUM
  14. METHOTREXATE. [Concomitant]
     Active Substance: METHOTREXATE
  15. SILIQ [Suspect]
     Active Substance: BRODALUMAB
     Indication: PSORIATIC ARTHROPATHY
     Route: 058
     Dates: start: 20191025
  16. ATORVASTATIN [Concomitant]
     Active Substance: ATORVASTATIN
  17. ALEVE?? [Concomitant]
  18. AMOXICLLLLN [Concomitant]
  19. CEPHALEXIN. [Concomitant]
     Active Substance: CEPHALEXIN
  20. FLUOCIN ACET OIL [Concomitant]
  21. IBANDRONATE [Concomitant]
     Active Substance: IBANDRONATE SODIUM

REACTIONS (1)
  - Skin cancer [None]

NARRATIVE: CASE EVENT DATE: 20200810
